FAERS Safety Report 19055233 (Version 1)
Quarter: 2021Q1

REPORT INFORMATION
  Report Type: Spontaneous
  Country: US (occurrence: US)
  Receive Date: 20210324
  Receipt Date: 20210324
  Transmission Date: 20210420
  Serious: No
  Sender: FDA-Public Use
  Company Number: None

PATIENT
  Age: 73 Year
  Sex: Female
  Weight: 72.58 kg

DRUGS (5)
  1. BENLYSTA [Suspect]
     Active Substance: BELIMUMAB
     Indication: SENILE OSTEOPOROSIS
     Dosage: ?          OTHER FREQUENCY:WEEKS 0,2,4;?
     Route: 011
     Dates: start: 202006
  2. BENLYSTA [Suspect]
     Active Substance: BELIMUMAB
     Indication: SUBACUTE CUTANEOUS LUPUS ERYTHEMATOSUS
  3. BENLYSTA [Suspect]
     Active Substance: BELIMUMAB
     Indication: SUBACUTE CUTANEOUS LUPUS ERYTHEMATOSUS
     Dosage: FREQUENCY: OVER 1 HOUR AT WEEKS 0, 2, AND 4 AS DIRECTED
     Route: 042
     Dates: start: 202006
  4. BENLYSTA [Suspect]
     Active Substance: BELIMUMAB
     Indication: SENILE OSTEOPOROSIS
     Dosage: ?          OTHER FREQUENCY:WEEKS 0,2,4;?
     Route: 011
     Dates: start: 202006
  5. BENLYSTA [Suspect]
     Active Substance: BELIMUMAB
     Indication: SENILE OSTEOPOROSIS
     Dosage: FREQUENCY: OVER 1 HOUR AT WEEKS 0, 2, AND 4 AS DIRECTED
     Route: 042
     Dates: start: 202006

REACTIONS (1)
  - Urinary tract infection [None]
